FAERS Safety Report 25543973 (Version 3)
Quarter: 2025Q3

REPORT INFORMATION
  Report Type: Spontaneous
  Country: US (occurrence: US)
  Receive Date: 20250711
  Receipt Date: 20250812
  Transmission Date: 20251020
  Serious: Yes (Hospitalization)
  Sender: BRISTOL-MYERS SQUIBB COMPANY
  Company Number: US-BRISTOL-MYERS SQUIBB COMPANY-2025-097875

PATIENT
  Age: 61 Year
  Sex: Female
  Weight: 60.33 kg

DRUGS (2)
  1. KRAZATI [Suspect]
     Active Substance: ADAGRASIB
     Indication: Pancreatic carcinoma
     Route: 048
     Dates: start: 20250630
  2. KRAZATI [Suspect]
     Active Substance: ADAGRASIB
     Route: 048

REACTIONS (11)
  - Asthenia [Recovering/Resolving]
  - Eye disorder [Recovering/Resolving]
  - Vomiting [Recovering/Resolving]
  - Dizziness [Unknown]
  - Dysstasia [Unknown]
  - Gait disturbance [Recovering/Resolving]
  - Vision blurred [Unknown]
  - Feeling cold [Unknown]
  - Off label use [Unknown]
  - Fatigue [Recovering/Resolving]
  - Dysphagia [Recovering/Resolving]

NARRATIVE: CASE EVENT DATE: 20250630
